FAERS Safety Report 17955469 (Version 1)
Quarter: 2020Q2

REPORT INFORMATION
  Report Type: Spontaneous
  Country: US (occurrence: US)
  Receive Date: 20200627
  Receipt Date: 20200627
  Transmission Date: 20200714
  Serious: Yes (Death, Hospitalization)
  Sender: FDA-Public Use
  Company Number: None

PATIENT
  Age: 74 Year
  Sex: Male
  Weight: 73.7 kg

DRUGS (3)
  1. PREDNISONE. [Suspect]
     Active Substance: PREDNISONE
     Dates: end: 20200608
  2. ABIRATERONE ACETATE. [Suspect]
     Active Substance: ABIRATERONE ACETATE
     Dates: end: 20200606
  3. LEUPROLIDE ACETATE. [Suspect]
     Active Substance: LEUPROLIDE ACETATE
     Dates: end: 20200508

REACTIONS (10)
  - Abdominal discomfort [None]
  - Metastases to bone [None]
  - Fatigue [None]
  - Metastases to liver [None]
  - Liver function test increased [None]
  - Blood creatine increased [None]
  - Lymphadenopathy [None]
  - Asthenia [None]
  - Hypokalaemia [None]
  - Blood calcium increased [None]

NARRATIVE: CASE EVENT DATE: 20200602
